FAERS Safety Report 21943762 (Version 1)
Quarter: 2023Q1

REPORT INFORMATION
  Report Type: Report from Study
  Country: US (occurrence: US)
  Receive Date: 20230202
  Receipt Date: 20230202
  Transmission Date: 20230417
  Serious: Yes (Hospitalization, Other)
  Sender: FDA-Public Use
  Company Number: US-ABBVIE-4290675

PATIENT
  Age: 49 Year
  Sex: Female

DRUGS (1)
  1. RINVOQ [Suspect]
     Active Substance: UPADACITINIB
     Indication: Rheumatoid arthritis
     Dosage: FORM STRENGTH: 15  MILLIGRAM?FREQUENCY TEXT: ONCE DAILY?START DATE TEXT: 02 JAN 2023
     Route: 048
     Dates: end: 20230104

REACTIONS (4)
  - Device related infection [Not Recovered/Not Resolved]
  - Unevaluable event [Unknown]
  - Prosthesis implantation [Unknown]
  - Joint arthroplasty [Unknown]

NARRATIVE: CASE EVENT DATE: 20230101
